FAERS Safety Report 13127680 (Version 1)
Quarter: 2017Q1

REPORT INFORMATION
  Report Type: Spontaneous
  Country: DE (occurrence: DE)
  Receive Date: 20170118
  Receipt Date: 20170118
  Transmission Date: 20170428
  Serious: Yes (Congenital Anomaly, Other)
  Sender: FDA-Public Use
  Company Number: DE-ALLERGAN-1701929US

PATIENT
  Age: 1 Day
  Sex: Female
  Weight: 2.81 kg

DRUGS (7)
  1. CITALOPRAM HYDROBROMIDE UNK [Suspect]
     Active Substance: CITALOPRAM HYDROBROMIDE
     Indication: MATERNAL EXPOSURE TIMING UNSPECIFIED
     Dosage: 20 MG, QD
     Route: 064
     Dates: start: 20150813, end: 20160411
  2. OPIPRAMOL [Concomitant]
     Active Substance: OPIPRAMOL
     Indication: ANXIETY DISORDER
     Dosage: 50 MG, TID
     Route: 064
     Dates: start: 20150701
  3. OPIPRAMOL [Concomitant]
     Active Substance: OPIPRAMOL
     Route: 064
     Dates: start: 20150701, end: 20150810
  4. FOLIO [Concomitant]
     Active Substance: FOLIC ACID
     Indication: PROPHYLAXIS OF NEURAL TUBE DEFECT
     Route: 064
     Dates: start: 20160411, end: 20160411
  5. ESCITALOPRAM [Concomitant]
     Active Substance: ESCITALOPRAM OXALATE
     Indication: ANXIETY DISORDER
     Route: 065
     Dates: start: 20150709, end: 20150803
  6. ESCITALOPRAM [Concomitant]
     Active Substance: ESCITALOPRAM OXALATE
     Dosage: 7.5 MG, UNK
     Route: 064
     Dates: start: 20150804, end: 20150811
  7. INFLUENZA VACCINE (SEASONAL) [Concomitant]
     Indication: IMMUNISATION
     Route: 064
     Dates: start: 20151015, end: 20151015

REACTIONS (3)
  - Atrial septal defect [Not Recovered/Not Resolved]
  - Foetal exposure during pregnancy [Unknown]
  - Small for dates baby [Recovered/Resolved]

NARRATIVE: CASE EVENT DATE: 20160411
